FAERS Safety Report 14410862 (Version 29)
Quarter: 2019Q3

REPORT INFORMATION
  Report Type: Spontaneous
  Country: CA (occurrence: CA)
  Receive Date: 20180119
  Receipt Date: 20190909
  Transmission Date: 20191004
  Serious: Yes (Other)
  Sender: FDA-Public Use
  Company Number: CA-CELLTRION INC.-2017CA011367

PATIENT

DRUGS (23)
  1. INFLECTRA [Suspect]
     Active Substance: INFLIXIMAB-DYYB
     Dosage: 565MG Q6WKS
     Route: 042
     Dates: start: 20171204, end: 20180104
  2. INFLECTRA [Suspect]
     Active Substance: INFLIXIMAB-DYYB
     Dosage: 600 MG, (EVERY 6 WEEKS)
     Route: 042
     Dates: start: 20190114
  3. INFLECTRA [Suspect]
     Active Substance: INFLIXIMAB-DYYB
     Dosage: 600 MG, (EVERY 4 WEEKS)
     Route: 042
     Dates: start: 20190506
  4. INFLECTRA [Suspect]
     Active Substance: INFLIXIMAB-DYYB
     Dosage: 600 MG, (EVERY 4 WEEKS)
     Route: 042
     Dates: start: 20190730
  5. IMURAN [Concomitant]
     Active Substance: AZATHIOPRINE
     Dosage: 3 DF, 1X/DAY
     Route: 048
     Dates: start: 201806
  6. INFLECTRA [Suspect]
     Active Substance: INFLIXIMAB-DYYB
     Dosage: 365 MG, (EVERY 6 WEEKS)
     Route: 042
     Dates: start: 20180228, end: 20180228
  7. INFLECTRA [Suspect]
     Active Substance: INFLIXIMAB-DYYB
     Dosage: 400 MG, (EVERY 6 WEEKS)
     Route: 042
     Dates: start: 20180910, end: 20180910
  8. INFLECTRA [Suspect]
     Active Substance: INFLIXIMAB-DYYB
     Dosage: 600 MG, (EVERY 4 WEEKS)
     Route: 042
     Dates: start: 20190603
  9. INFLECTRA [Suspect]
     Active Substance: INFLIXIMAB-DYYB
     Dosage: 600 MG, (EVERY 4 WEEKS)
     Route: 042
     Dates: start: 20190827
  10. INFLECTRA [Suspect]
     Active Substance: INFLIXIMAB-DYYB
     Dosage: 365 MG (EVERY 6 WEEKS)
     Route: 042
     Dates: start: 20180117, end: 20180117
  11. INFLECTRA [Suspect]
     Active Substance: INFLIXIMAB-DYYB
     Dosage: 600 MG, (EVERY 4 WEEKS)
     Route: 042
     Dates: start: 20190214
  12. INFLECTRA [Suspect]
     Active Substance: INFLIXIMAB-DYYB
     Dosage: 600 MG, (EVERY 4 WEEKS)
     Route: 042
     Dates: start: 20190703
  13. INFLECTRA [Suspect]
     Active Substance: INFLIXIMAB-DYYB
     Indication: CROHN^S DISEASE
     Dosage: 350 MG, (EVERY 6 WEEKS)
     Route: 042
     Dates: start: 20170426, end: 20170426
  14. INFLECTRA [Suspect]
     Active Substance: INFLIXIMAB-DYYB
     Dosage: 365 MG, (EVERY 6 WEEKS)
     Route: 042
     Dates: start: 20180410, end: 20180410
  15. INFLECTRA [Suspect]
     Active Substance: INFLIXIMAB-DYYB
     Dosage: 400 MG, (EVERY 6 WEEKS)
     Route: 042
     Dates: start: 20181022, end: 20181022
  16. INFLECTRA [Suspect]
     Active Substance: INFLIXIMAB-DYYB
     Dosage: 565 MG, (EVERY 6 WEEKS)
     Route: 042
     Dates: start: 20181205, end: 20181205
  17. INFLECTRA [Suspect]
     Active Substance: INFLIXIMAB-DYYB
     Indication: COLITIS ULCERATIVE
     Dosage: 350 MG, (EVERY 6 WEEKS)
     Route: 042
     Dates: start: 20171122, end: 20171122
  18. INFLECTRA [Suspect]
     Active Substance: INFLIXIMAB-DYYB
     Dosage: 400 MG, (EVERY 6 WEEKS)
     Route: 042
     Dates: start: 20180523, end: 20180523
  19. INFLECTRA [Suspect]
     Active Substance: INFLIXIMAB-DYYB
     Dosage: 400 MG, (EVERY 6 WEEKS)
     Route: 042
     Dates: start: 20180523, end: 20180523
  20. INFLECTRA [Suspect]
     Active Substance: INFLIXIMAB-DYYB
     Dosage: 400 MG, (EVERY 6 WEEKS)
     Route: 042
     Dates: start: 20180704, end: 20180704
  21. INFLECTRA [Suspect]
     Active Substance: INFLIXIMAB-DYYB
     Dosage: 400MG, SINGLE (RESCUE DOSE)
     Route: 042
     Dates: start: 20180730, end: 20180730
  22. INFLECTRA [Suspect]
     Active Substance: INFLIXIMAB-DYYB
     Dosage: 600 MG, (EVERY 4 WEEKS)
     Route: 042
     Dates: start: 20190311
  23. INFLECTRA [Suspect]
     Active Substance: INFLIXIMAB-DYYB
     Dosage: 600 MG, (EVERY 4 WEEKS)
     Route: 042
     Dates: start: 20190408

REACTIONS (10)
  - Crohn^s disease [Not Recovered/Not Resolved]
  - Arthralgia [Unknown]
  - Erythema nodosum [Unknown]
  - Weight decreased [Unknown]
  - Therapeutic response shortened [Unknown]
  - Drug level below therapeutic [Unknown]
  - Drug level decreased [Unknown]
  - Off label use [Unknown]
  - Inappropriate schedule of product administration [Unknown]
  - Weight increased [Recovering/Resolving]

NARRATIVE: CASE EVENT DATE: 20170802
